FAERS Safety Report 9219262 (Version 1)
Quarter: 2013Q2

REPORT INFORMATION
  Report Type: Spontaneous
  Country: FR (occurrence: FR)
  Receive Date: 20130409
  Receipt Date: 20130409
  Transmission Date: 20140414
  Serious: Yes (Hospitalization, Other)
  Sender: FDA-Public Use
  Company Number: FR-ASTELLAS-2013EU003074

PATIENT
  Age: 48 Year
  Sex: Male

DRUGS (3)
  1. PROGRAF [Suspect]
     Indication: RENAL TRANSPLANT
     Dosage: 1.5 MG, BID
     Route: 048
  2. SELENIUM [Interacting]
     Dosage: UNK
     Route: 065
     Dates: end: 201303
  3. MYCOPHENOLATE MOFETIL [Concomitant]
     Indication: RENAL TRANSPLANT
     Dosage: 250 MG, BID
     Route: 048

REACTIONS (5)
  - Drug interaction [Unknown]
  - Drug interaction [Unknown]
  - Pruritus generalised [Recovering/Resolving]
  - Burning sensation [Recovering/Resolving]
  - Hepatic enzyme increased [Unknown]
